FAERS Safety Report 14362489 (Version 1)
Quarter: 2018Q1

REPORT INFORMATION
  Report Type: Spontaneous
  Country: US (occurrence: US)
  Receive Date: 20180105
  Receipt Date: 20180105
  Transmission Date: 20180509
  Serious: Yes (Hospitalization)
  Sender: FDA-Public Use
  Company Number: None

PATIENT
  Age: 24 Year
  Sex: Female

DRUGS (14)
  1. LEFLUNOMIDE. [Concomitant]
     Active Substance: LEFLUNOMIDE
  2. TILIA FE [Concomitant]
     Active Substance: ETHINYL ESTRADIOL\NORETHINDRONE ACETATE
  3. FA [Concomitant]
  4. GABAPENTIN. [Concomitant]
     Active Substance: GABAPENTIN
  5. OXYCODONE [Concomitant]
     Active Substance: OXYCODONE
  6. CARISOPRODOL. [Concomitant]
     Active Substance: CARISOPRODOL
  7. NABUMETONE. [Concomitant]
     Active Substance: NABUMETONE
  8. MORPHINE [Concomitant]
     Active Substance: MORPHINE
  9. HYDROCO/APAP [Concomitant]
     Active Substance: ACETAMINOPHEN\HYDROCODONE
  10. NUCYNTA [Concomitant]
     Active Substance: TAPENTADOL HYDROCHLORIDE
  11. VICTOZA [Concomitant]
     Active Substance: LIRAGLUTIDE
  12. TALTZ [Suspect]
     Active Substance: IXEKIZUMAB
     Indication: ANKYLOSING SPONDYLITIS
     Route: 058
     Dates: start: 20171215
  13. LEVORPHANOL [Concomitant]
     Active Substance: LEVORPHANOL
  14. CYCLOBENZAPRINE. [Concomitant]
     Active Substance: CYCLOBENZAPRINE

REACTIONS (2)
  - Ankylosing spondylitis [None]
  - Condition aggravated [None]

NARRATIVE: CASE EVENT DATE: 20171218
